FAERS Safety Report 23048968 (Version 1)
Quarter: 2023Q4

REPORT INFORMATION
  Report Type: Spontaneous
  Country: US (occurrence: US)
  Receive Date: 20231010
  Receipt Date: 20231010
  Transmission Date: 20240109
  Serious: Yes (Hospitalization)
  Sender: FDA-Public Use
  Company Number: US-GRANULES-US-2023GRALIT00256

PATIENT
  Age: 26 Year
  Sex: Male
  Weight: 83.9 kg

DRUGS (4)
  1. DEXTROAMPHET SACCHARAT, AMPHET ASPARTATE, DEXTROAMPHET SULFATE AND AMP [Suspect]
     Active Substance: AMPHETAMINE ASPARTATE\AMPHETAMINE ASPARTATE MONOHYDRATE\AMPHETAMINE SULFATE\DEXTROAMPHETAMINE SACCHA
     Indication: Product used for unknown indication
     Route: 065
  2. METHADONE [Concomitant]
     Active Substance: METHADONE HYDROCHLORIDE
     Indication: Product used for unknown indication
     Dosage: UNINTENTIONALLY INGESTING 200-250 MG
     Route: 048
  3. NALOXONE [Concomitant]
     Active Substance: NALOXONE
     Indication: Product used for unknown indication
     Route: 065
  4. NALOXONE [Concomitant]
     Active Substance: NALOXONE
     Dosage: 2 DOSES OF NALOXONE
     Route: 065

REACTIONS (2)
  - Symptom masked [Unknown]
  - Intentional product misuse [Unknown]
